FAERS Safety Report 21381327 (Version 1)
Quarter: 2022Q3

REPORT INFORMATION
  Report Type: Spontaneous
  Country: US (occurrence: US)
  Receive Date: 20220927
  Receipt Date: 20220927
  Transmission Date: 20221027
  Serious: Yes (Other)
  Sender: FDA-Public Use
  Company Number: US-PFIZER INC-202201184998

PATIENT
  Age: 63 Year
  Sex: Female
  Weight: 73.94 kg

DRUGS (2)
  1. XELJANZ XR [Suspect]
     Active Substance: TOFACITINIB CITRATE
     Indication: Psoriatic arthropathy
     Dosage: 11 MG, 1X/DAY
  2. ESTRADIOL [Concomitant]
     Active Substance: ESTRADIOL
     Dosage: UNK, 2X/WEEK
     Route: 067
     Dates: start: 20220706

REACTIONS (3)
  - Bladder prolapse [Unknown]
  - Uterine prolapse [Unknown]
  - Pain [Unknown]

NARRATIVE: CASE EVENT DATE: 20211122
